FAERS Safety Report 13064729 (Version 3)
Quarter: 2017Q1

REPORT INFORMATION
  Report Type: Spontaneous
  Country: LB (occurrence: LB)
  Receive Date: 20161227
  Receipt Date: 20170130
  Transmission Date: 20170428
  Serious: Yes (Death, Hospitalization)
  Sender: FDA-Public Use
  Company Number: LB-PFIZER INC-2016590367

PATIENT
  Age: 76 Year
  Sex: Male

DRUGS (3)
  1. BISOCOR [Concomitant]
     Active Substance: BISOPROLOL FUMARATE
     Dosage: 5 MG, PER DAY
     Dates: end: 20161213
  2. VASCOR /00489602/ [Concomitant]
     Dosage: 1 TABLET PER DAY
     Dates: end: 20161213
  3. SUTENT [Suspect]
     Active Substance: SUNITINIB MALATE
     Indication: RENAL CELL CARCINOMA
     Dosage: 50 MG, 4X/DAY
     Route: 048
     Dates: start: 20161026, end: 20161219

REACTIONS (2)
  - Altered state of consciousness [Fatal]
  - General physical health deterioration [Fatal]

NARRATIVE: CASE EVENT DATE: 20161212
